FAERS Safety Report 10206828 (Version 1)
Quarter: 2014Q2

REPORT INFORMATION
  Report Type: Spontaneous
  Country: US (occurrence: US)
  Receive Date: 20140530
  Receipt Date: 20140530
  Transmission Date: 20141212
  Serious: Yes (Other)
  Sender: FDA-Public Use
  Company Number: US-PFIZER INC-2014143733

PATIENT
  Age: 85 Year
  Sex: Female
  Weight: 49 kg

DRUGS (5)
  1. XALATAN [Suspect]
     Indication: GLAUCOMA
     Dosage: UNK, 2X/DAY
     Route: 047
     Dates: start: 2005
  2. COREG [Concomitant]
     Dosage: 12.5 MG, 2X/DAY
  3. LANOXIN [Concomitant]
     Dosage: 125 UG, DAILY
  4. HYDROCHLOROTHIAZIDE [Concomitant]
     Dosage: UNK
  5. ACTONEL [Concomitant]
     Indication: BONE DISORDER
     Dosage: 35 MG, WEEKLY

REACTIONS (1)
  - Hernia [Unknown]
